FAERS Safety Report 7996791-3 (Version None)
Quarter: 2011Q4

REPORT INFORMATION
  Report Type: 
  Country: None (occurrence: None)
  Receive Date: 20111221
  Receipt Date: 20111209
  Transmission Date: 20120403
  Serious: Yes (Other)
  Sender: FDA-Public Use
  Company Number: GB-AMGEN-GBRSP2011043778

PATIENT
  Age: 38 Year
  Sex: Male
  Weight: 89.5 kg

DRUGS (3)
  1. OMEPRAZOLE [Concomitant]
     Dosage: 20 MG, 1X/DAY
     Route: 048
  2. NAPROXEN [Concomitant]
     Dosage: 500 MG, 2X/DAY
     Route: 048
  3. ENBREL [Suspect]
     Indication: ANKYLOSING SPONDYLITIS
     Dosage: 50 MG, WEEKLY
     Route: 058
     Dates: start: 20110201, end: 20110701

REACTIONS (9)
  - FATIGUE [None]
  - DISTURBANCE IN ATTENTION [None]
  - HEADACHE [None]
  - MENTAL IMPAIRMENT [None]
  - HYPOAESTHESIA [None]
  - HEARING IMPAIRED [None]
  - DIZZINESS [None]
  - IRITIS [None]
  - NAUSEA [None]
